FAERS Safety Report 22054082 (Version 1)
Quarter: 2023Q1

REPORT INFORMATION
  Report Type: Spontaneous
  Country: US (occurrence: US)
  Receive Date: 20230302
  Receipt Date: 20230302
  Transmission Date: 20230417
  Serious: No
  Sender: FDA-Public Use
  Company Number: US-NOVOPROD-947587

PATIENT
  Sex: Female

DRUGS (1)
  1. SAXENDA [Suspect]
     Active Substance: LIRAGLUTIDE
     Indication: Weight decreased
     Dosage: 2.4 MG
     Route: 058
     Dates: start: 20211023

REACTIONS (5)
  - Lethargy [Unknown]
  - Wrong technique in product usage process [Unknown]
  - Constipation [Unknown]
  - Dizziness [Unknown]
  - Nausea [Unknown]
